FAERS Safety Report 18587479 (Version 3)
Quarter: 2021Q2

REPORT INFORMATION
  Report Type: Report from Study
  Country: CA (occurrence: CA)
  Receive Date: 20201207
  Receipt Date: 20210623
  Transmission Date: 20210717
  Serious: Yes (Other)
  Sender: FDA-Public Use
  Company Number: CA-JNJFOC-20201202824

PATIENT
  Age: 15 Year
  Sex: Male

DRUGS (1)
  1. REMICADE [Suspect]
     Active Substance: INFLIXIMAB
     Indication: UVEITIS
     Dosage: ON 30?NOV?2020, THE PATIENT RECEIVED 500 MILLIGRAMS, 7TH INFLIXIMAB INFUSION.?MAINTENANCE DOSE/FREQU
     Route: 042
     Dates: start: 20191230

REACTIONS (4)
  - Sports injury [Unknown]
  - Product use in unapproved indication [Unknown]
  - Off label use [Unknown]
  - Wrist fracture [Recovered/Resolved]

NARRATIVE: CASE EVENT DATE: 20191230
